FAERS Safety Report 13332068 (Version 2)
Quarter: 2017Q3

REPORT INFORMATION
  Report Type: Report from Study
  Country: JP (occurrence: JP)
  Receive Date: 20170313
  Receipt Date: 20170714
  Transmission Date: 20171127
  Serious: Yes (Other)
  Sender: FDA-Public Use
  Company Number: JP-IPSEN BIOPHARMACEUTICALS, INC.-2017-01945

PATIENT
  Sex: Female

DRUGS (12)
  1. GASTER [Concomitant]
     Active Substance: FAMOTIDINE
     Route: 048
  2. LOXONIN [Concomitant]
     Active Substance: LOXOPROFEN SODIUM
     Route: 048
  3. SOMAVERT [Concomitant]
     Active Substance: PEGVISOMANT
     Dates: start: 20160517, end: 20161010
  4. SOMATULINE 120MG [Suspect]
     Active Substance: LANREOTIDE ACETATE
     Indication: GROWTH HORMONE-PRODUCING PITUITARY TUMOUR
     Dosage: 120 MG
     Route: 058
     Dates: start: 20151006
  5. SOMATULINE 120MG [Suspect]
     Active Substance: LANREOTIDE ACETATE
     Indication: OFF LABEL USE
  6. LAXOBERON SOLUTION [Concomitant]
     Route: 048
  7. MOHRUS TAPE [Concomitant]
     Active Substance: KETOPROFEN
     Route: 061
     Dates: start: 20160517
  8. CINAL [Concomitant]
     Active Substance: ASCORBIC ACID\CALCIUM PANTOTHENATE
     Route: 048
  9. SOMAVERT [Concomitant]
     Active Substance: PEGVISOMANT
     Indication: GROWTH HORMONE-PRODUCING PITUITARY TUMOUR
     Dates: start: 20120522, end: 20160516
  10. SOMAVERT [Concomitant]
     Active Substance: PEGVISOMANT
     Dates: start: 20161011
  11. ADALAT CC [Concomitant]
     Active Substance: NIFEDIPINE
     Route: 048
     Dates: start: 20160906, end: 20161010
  12. ADALAT CC [Concomitant]
     Active Substance: NIFEDIPINE
     Route: 048
     Dates: start: 20161011

REACTIONS (2)
  - Off label use [Unknown]
  - Alopecia [Not Recovered/Not Resolved]
